FAERS Safety Report 8809790 (Version 1)
Quarter: 2012Q4

REPORT INFORMATION
  Report Type: 
  Country: HU (occurrence: HU)
  Receive Date: 20120926
  Receipt Date: 20120926
  Transmission Date: 20130627
  Serious: Yes (Hospitalization)
  Sender: FDA-Public Use
  Company Number: HU-MYLANLABS-2012S1019430

PATIENT
  Age: 53 Year
  Sex: Female

DRUGS (14)
  1. LITHIUM [Suspect]
     Route: 065
  2. LITHIUM [Suspect]
     Route: 065
  3. CARBAMAZEPINE [Interacting]
     Route: 065
  4. QUETIAPINE [Interacting]
     Route: 065
  5. ESCITALOPRAM [Suspect]
     Dosage: 10mg (frequency not stated)
     Route: 065
  6. KETOCONAZOLE [Interacting]
     Indication: INTERTRIGO
     Route: 065
  7. ATORVASTATIN [Concomitant]
     Dosage: 40mg (frequency not stated)
     Route: 065
  8. LEVOTHYROXINE SODIUM [Concomitant]
     Dosage: 150microg (frequency not stated)
     Route: 065
  9. CLONAZEPAM [Concomitant]
     Dosage: 1-1-2mg (frequency not stated)
     Route: 065
  10. CINOLAZEPAM [Concomitant]
     Dosage: 40mg (frequency not stated)
     Route: 065
  11. AMILORIDE [Concomitant]
     Dosage: 5mg (frequency not stated)
     Route: 065
  12. HYDROCHLOROTHIAZIDE [Concomitant]
     Dosage: 50mg (frequency not stated)
     Route: 065
  13. ASPIRIN [Concomitant]
     Dosage: 100mg (frequency not stated)
     Route: 065
  14. CLONAZEPAM [Concomitant]
     Dosage: 0.5-0.5-3mg (frequency not stated)
     Route: 065

REACTIONS (4)
  - Sinus arrhythmia [Recovered/Resolved]
  - Sinus arrhythmia [Recovered/Resolved]
  - Drug interaction [Recovered/Resolved]
  - Drug interaction [Recovered/Resolved]
